FAERS Safety Report 7761870-2 (Version None)
Quarter: 2011Q3

REPORT INFORMATION
  Report Type: 
  Country: None (occurrence: None)
  Receive Date: 20110920
  Receipt Date: 20110919
  Transmission Date: 20111222
  Serious: Yes (Other)
  Sender: FDA-Public Use
  Company Number: BE-SANOFI-AVENTIS-2011SA060910

PATIENT
  Age: 45 Year
  Sex: Female

DRUGS (2)
  1. ENOXAPARIN SODIUM [Suspect]
  2. ENOXAPARIN SODIUM [Suspect]

REACTIONS (1)
  - ANGIOEDEMA [None]
